FAERS Safety Report 7884316-2 (Version None)
Quarter: 2011Q4

REPORT INFORMATION
  Report Type: 
  Country: None (occurrence: None)
  Receive Date: 20111102
  Receipt Date: 20111023
  Transmission Date: 20120403
  Serious: Yes (Other)
  Sender: FDA-Public Use
  Company Number: IT-JNJFOC-20111010608

PATIENT
  Sex: Female

DRUGS (4)
  1. DARUNAVIR ETHANOLATE [Suspect]
     Indication: HIV INFECTION
     Route: 065
  2. RITONAVIR [Concomitant]
     Indication: HIV INFECTION
     Route: 065
  3. VIREAD [Concomitant]
     Indication: HIV INFECTION
     Route: 065
  4. EPIVIR [Concomitant]
     Indication: HIV INFECTION
     Route: 065

REACTIONS (1)
  - HEPATIC FUNCTION ABNORMAL [None]
